FAERS Safety Report 5621705-0 (Version None)
Quarter: 2008Q1

REPORT INFORMATION
  Report Type: 
  Country: None (occurrence: None)
  Receive Date: 20080211
  Receipt Date: 20080204
  Transmission Date: 20080703
  Serious: Yes (Hospitalization)
  Sender: FDA-Public Use
  Company Number: PHBS2008IT01852

PATIENT
  Age: 26 Year
  Sex: Female

DRUGS (1)
  1. SANDIMMUNE [Suspect]
     Indication: DERMATITIS ATOPIC
     Dosage: 175 MG/D
     Route: 048

REACTIONS (4)
  - DERMATITIS ATOPIC [None]
  - MENSTRUAL DISORDER [None]
  - PELVIC PAIN [None]
  - SHOCK [None]
